FAERS Safety Report 11416391 (Version 1)
Quarter: 2015Q3

REPORT INFORMATION
  Report Type: Spontaneous
  Country: US (occurrence: US)
  Receive Date: 20150825
  Receipt Date: 20150825
  Transmission Date: 20151125
  Serious: Yes (Life-Threatening, Hospitalization, Disabling, Other)
  Sender: FDA-Public Use
  Company Number: US-SHIONOGI, INC-2015000892

PATIENT
  Age: 57 Year
  Sex: Female
  Weight: 54.42 kg

DRUGS (1)
  1. OSPHENA [Suspect]
     Active Substance: OSPEMIFENE
     Indication: DYSPAREUNIA
     Dosage: 60 MG, QD
     Route: 048
     Dates: start: 201405, end: 201408

REACTIONS (6)
  - Paralysis [Not Recovered/Not Resolved]
  - Cerebral venous thrombosis [Recovered/Resolved with Sequelae]
  - Coma [Recovered/Resolved]
  - Cerebral haemorrhage [Not Recovered/Not Resolved]
  - Craniectomy [Unknown]
  - Seizure [Unknown]

NARRATIVE: CASE EVENT DATE: 20140810
